FAERS Safety Report 12453754 (Version 1)
Quarter: 2016Q2

REPORT INFORMATION
  Report Type: Spontaneous
  Country: PL (occurrence: PL)
  Receive Date: 20160609
  Receipt Date: 20160609
  Transmission Date: 20160815
  Serious: Yes (Other)
  Sender: FDA-Public Use
  Company Number: PL-APOTEX-2016AP008868

PATIENT
  Age: 48 Year
  Sex: Male

DRUGS (12)
  1. CYCLOPHOSPHAMIDE. [Suspect]
     Active Substance: CYCLOPHOSPHAMIDE
     Indication: BEHCET^S SYNDROME
     Dosage: 1.0 G, MONTHLY
     Route: 050
  2. TACROLIMUS. [Suspect]
     Active Substance: TACROLIMUS
     Indication: DERMATITIS BULLOUS
     Dosage: UNK
     Route: 065
  3. METHOTREXATE [Suspect]
     Active Substance: METHOTREXATE
     Indication: BEHCET^S SYNDROME
     Dosage: STARTING DOSE OF 15.0 MG/WEK
     Route: 065
  4. INFLIXIMAB [Suspect]
     Active Substance: INFLIXIMAB
     Indication: BEHCET^S SYNDROME
     Dosage: 5.0MG/KG BW (400 MG) IN THREE DOSE (DOSE 2 : 2 WEEKS AFTER DOSE 1, DOSE 3: SIX WEEKS AFTER DOSE 2)
     Route: 042
  5. ENCORTON /00044701/ [Suspect]
     Active Substance: PREDNISONE
     Indication: BEHCET^S SYNDROME
     Dosage: 90 MG/DAY
     Route: 065
  6. FRAXIPARINA [Suspect]
     Active Substance: NADROPARIN CALCIUM
     Indication: BEHCET^S SYNDROME
     Dosage: THERAPEUTIC DOSE
     Route: 065
  7. GANCICLOVIR. [Suspect]
     Active Substance: GANCICLOVIR
     Indication: BEHCET^S SYNDROME
     Dosage: 800 MG, DAILY
     Route: 042
  8. CYCLOSPORINE. [Suspect]
     Active Substance: CYCLOSPORINE
     Indication: BEHCET^S SYNDROME
     Dosage: 100 MG, DAILY
     Route: 065
  9. METHOTREXATE [Suspect]
     Active Substance: METHOTREXATE
     Dosage: 25.0 MG/WK TARGET DOSE
  10. FLUCONAZOLE. [Suspect]
     Active Substance: FLUCONAZOLE
     Indication: ORAL MUCOSAL ERUPTION
     Dosage: UNK
     Route: 065
  11. ACETYLSALICYLIC ACID [Suspect]
     Active Substance: ASPIRIN
     Indication: BEHCET^S SYNDROME
     Dosage: UNK
     Route: 065
  12. APO-PENTOX SR [Suspect]
     Active Substance: PENTOXIFYLLINE
     Indication: BEHCET^S SYNDROME
     Dosage: UNK
     Route: 065

REACTIONS (4)
  - Disease progression [Not Recovered/Not Resolved]
  - Drug ineffective [Not Recovered/Not Resolved]
  - Retinal depigmentation [Not Recovered/Not Resolved]
  - Visual acuity reduced [Not Recovered/Not Resolved]
